FAERS Safety Report 24526796 (Version 1)
Quarter: 2024Q4

REPORT INFORMATION
  Report Type: Report from Study
  Country: US (occurrence: US)
  Receive Date: 20241021
  Receipt Date: 20241021
  Transmission Date: 20250115
  Serious: No
  Sender: ROCHE
  Company Number: US-ROCHE-3506346

PATIENT
  Age: 70 Year
  Sex: Male

DRUGS (8)
  1. ZELBORAF [Suspect]
     Active Substance: VEMURAFENIB
     Indication: Malignant melanoma
     Route: 065
  2. ZELBORAF [Suspect]
     Active Substance: VEMURAFENIB
     Indication: Metastases to gastrointestinal tract
  3. ZELBORAF [Suspect]
     Active Substance: VEMURAFENIB
     Indication: Metastases to nervous system
  4. ZELBORAF [Suspect]
     Active Substance: VEMURAFENIB
     Indication: Malignant melanoma
  5. COTELLIC [Suspect]
     Active Substance: COBIMETINIB
     Indication: Malignant melanoma
     Dosage: 3 TABLETS
     Route: 048
  6. COTELLIC [Suspect]
     Active Substance: COBIMETINIB
     Indication: Metastases to gastrointestinal tract
     Dosage: 2 TABLETS
     Route: 048
  7. COTELLIC [Suspect]
     Active Substance: COBIMETINIB
     Indication: Metastases to nervous system
  8. COTELLIC [Suspect]
     Active Substance: COBIMETINIB
     Indication: Malignant melanoma

REACTIONS (2)
  - Headache [Unknown]
  - Nausea [Unknown]
